FAERS Safety Report 5990313-4 (Version None)
Quarter: 2008Q4

REPORT INFORMATION
  Report Type: 
  Country: None (occurrence: None)
  Receive Date: 20081211
  Receipt Date: 20081204
  Transmission Date: 20090506
  Serious: Yes (Other)
  Sender: FDA-Public Use
  Company Number: JP-BAYER-200811925BYL

PATIENT
  Age: 78 Year
  Sex: Male
  Weight: 61 kg

DRUGS (6)
  1. NEXAVAR [Suspect]
     Indication: RENAL CELL CARCINOMA STAGE IV
     Dosage: UNIT DOSE: 200 MG
     Route: 048
     Dates: start: 20080403, end: 20080821
  2. NEXAVAR [Suspect]
     Dosage: TOTAL DAILY DOSE: 200 MG  UNIT DOSE: 200 MG
     Route: 048
     Dates: start: 20081002, end: 20081023
  3. HARNAL [Concomitant]
     Indication: DRUG USE FOR UNKNOWN INDICATION
     Route: 048
  4. MEVALOTIN [Concomitant]
     Indication: HYPERLIPIDAEMIA
     Route: 048
  5. URSO 250 [Concomitant]
     Route: 048
     Dates: start: 20081120, end: 20081203
  6. URSO 250 [Concomitant]
     Route: 048
     Dates: start: 20081204

REACTIONS (5)
  - BLOOD AMYLASE INCREASED [None]
  - DYSPHONIA [None]
  - HEPATIC FUNCTION ABNORMAL [None]
  - HYPOPHOSPHATAEMIA [None]
  - LIPASE INCREASED [None]
